FAERS Safety Report 16325546 (Version 1)
Quarter: 2019Q2

REPORT INFORMATION
  Report Type: Spontaneous
  Country: US (occurrence: US)
  Receive Date: 20190517
  Receipt Date: 20190517
  Transmission Date: 20190711
  Serious: Yes (Hospitalization, Other)
  Sender: FDA-Public Use
  Company Number: US-MYLANLABS-2019M1046499

PATIENT
  Age: 42 Year
  Sex: Female

DRUGS (2)
  1. ASPIRIN                            /00002701/ [Suspect]
     Active Substance: ASPIRIN
     Indication: ANTIPLATELET THERAPY
     Dosage: UNK
     Route: 065
  2. WARFARIN [Suspect]
     Active Substance: WARFARIN
     Indication: ANTICOAGULANT THERAPY
     Dosage: UNK
     Route: 065

REACTIONS (10)
  - Vulvovaginal pain [Recovering/Resolving]
  - Intracranial haematoma [Recovered/Resolved]
  - Subdural haematoma [Recovered/Resolved]
  - Spinal subdural haematoma [Recovered/Resolved]
  - Spinal stenosis [Recovering/Resolving]
  - Gait disturbance [Recovering/Resolving]
  - Arachnoiditis [Recovering/Resolving]
  - Anaemia [Recovering/Resolving]
  - Haemorrhage intracranial [Recovered/Resolved]
  - Subarachnoid haematoma [Recovered/Resolved]
